FAERS Safety Report 16977591 (Version 1)
Quarter: 2019Q4

REPORT INFORMATION
  Report Type: Spontaneous
  Country: CN (occurrence: CN)
  Receive Date: 20191031
  Receipt Date: 20191031
  Transmission Date: 20200122
  Serious: Yes (Other)
  Sender: FDA-Public Use
  Company Number: CN-BAXTER-2019BAX021743

PATIENT
  Age: 44 Year
  Sex: Female
  Weight: 49 kg

DRUGS (12)
  1. 0.9% SODIUM CHLORIDE INJECTION [Suspect]
     Active Substance: SODIUM CHLORIDE
     Dosage: CYCLOPHOSPHAMIDE + 0.9% NS
     Route: 041
  2. PIRARUBICIN HYDROCHLORIDE [Suspect]
     Active Substance: PIRARUBICIN HYDROCHLORIDE
     Dosage: PIRARUBICIN + 5% GS
     Route: 041
  3. ENDOXAN [Suspect]
     Active Substance: CYCLOPHOSPHAMIDE
     Dosage: ENDOXAN + 0.9% NS
     Route: 041
  4. 5% GLUCOSE  INJECTION [Suspect]
     Active Substance: DEXTROSE
     Indication: MEDICATION DILUTION
     Dosage: CHEMOTHERAPY COURSE 1 - 3, PIRARUBICIN + 5% GS
     Route: 041
  5. ENDOXAN [Suspect]
     Active Substance: CYCLOPHOSPHAMIDE
     Indication: BREAST CANCER FEMALE
     Dosage: CHEMOTHERAPY COURSE 1 - 3, CYCLOPHOSPHAMIDE + 0.9% NS
     Route: 041
  6. 0.9% SODIUM CHLORIDE INJECTION [Suspect]
     Active Substance: SODIUM CHLORIDE
     Indication: MEDICATION DILUTION
     Dosage: CHEMOTHERAPY COURSE 1 - 3, CYCLOPHOSPHAMIDE + 0.9% NS
     Route: 041
  7. 0.9% SODIUM CHLORIDE INJECTION [Suspect]
     Active Substance: SODIUM CHLORIDE
     Dosage: CHEMOTHERAPY COURSE 4, CYCLOPHOSPHAMIDE 800 MG + 0.9% NS 250 ML, DAY 1
     Route: 041
     Dates: start: 20191009, end: 20191009
  8. 5% GLUCOSE  INJECTION [Suspect]
     Active Substance: DEXTROSE
     Dosage: CHEMOTHERAPY COURSE 4, PIRARUBICIN 80 MG + 5% GS 250 ML, DAY 1
     Route: 041
     Dates: start: 20191009, end: 20191009
  9. 5% GLUCOSE  INJECTION [Suspect]
     Active Substance: DEXTROSE
     Dosage: PIRARUBICIN + 5% GS
     Route: 041
  10. PIRARUBICIN HYDROCHLORIDE [Suspect]
     Active Substance: PIRARUBICIN HYDROCHLORIDE
     Indication: BREAST CANCER FEMALE
     Dosage: CHEMOTHERAPY COURSE 1 - 3, PIRARUBICIN + 5% GS
     Route: 041
  11. ENDOXAN [Suspect]
     Active Substance: CYCLOPHOSPHAMIDE
     Dosage: FOURTH COURSE OF CHEMOTHERAPY, CYCLOPHOSPHAMIDE 800 MG + 0.9% NS 250 ML, DAY 1
     Route: 041
     Dates: start: 20191009, end: 20191009
  12. PIRARUBICIN HYDROCHLORIDE [Suspect]
     Active Substance: PIRARUBICIN HYDROCHLORIDE
     Dosage: CHEMOTHERAPY COURSE 4, PIRARUBICIN 80 MG + 5% GS 250 ML, DAY 1
     Route: 041
     Dates: start: 20191009, end: 20191009

REACTIONS (2)
  - Nausea [Recovering/Resolving]
  - Vomiting [Recovering/Resolving]

NARRATIVE: CASE EVENT DATE: 20191009
